FAERS Safety Report 9595337 (Version 1)
Quarter: 2013Q4

REPORT INFORMATION
  Report Type: Spontaneous
  Country: US (occurrence: US)
  Receive Date: 20131004
  Receipt Date: 20131004
  Transmission Date: 20140711
  Serious: No
  Sender: FDA-Public Use
  Company Number: US-PFIZER INC-2013278648

PATIENT
  Age: 67 Year
  Sex: Female
  Weight: 75.74 kg

DRUGS (18)
  1. PROTONIX [Suspect]
     Dosage: 40 MG, 1X/DAY
     Route: 048
     Dates: start: 20120920, end: 20120920
  2. PROTONIX [Suspect]
     Dosage: 40 MG, 1X/DAY
     Route: 048
     Dates: start: 20130917
  3. PROTONIX [Suspect]
     Dosage: 40 MG, QPM
     Route: 048
     Dates: end: 20120709
  4. BUSPIRONE [Concomitant]
     Dosage: 10 MG, 2X/DAY
     Route: 048
     Dates: start: 20120224
  5. PLAVIX [Concomitant]
     Dosage: 75 MG, 1X/DAY
     Route: 048
     Dates: start: 20120709
  6. PAROXETINE [Concomitant]
     Dosage: 20 MG, 1X/DAY
     Route: 048
     Dates: start: 20120709
  7. GABAPENTIN [Concomitant]
     Dosage: 300 MG, 2X/DAY
     Route: 048
     Dates: start: 20120709
  8. TRAMADOL [Concomitant]
     Indication: PAIN
     Dosage: 50 MG, Q 6H PRN
     Route: 048
     Dates: start: 20120709
  9. LISINOPRIL [Concomitant]
     Dosage: 10 MG, 2X/DAY
     Route: 048
     Dates: start: 20111230
  10. ATENOLOL [Concomitant]
     Dosage: 25 MG, Q PM
     Route: 048
     Dates: start: 20120709
  11. PRAVASTATIN [Concomitant]
     Dosage: 40 MG, 1X/DAY
     Route: 048
     Dates: start: 20120709
  12. TRAZODONE [Concomitant]
     Dosage: 100 MG, 2 AT BEDTIME
     Route: 048
     Dates: start: 20120709
  13. METFORMIN [Concomitant]
     Dosage: 500 MG, 2X/DAY
     Route: 048
     Dates: start: 20120709
  14. ALBUTEROL [Concomitant]
     Indication: DYSPNOEA
     Dosage: 90 MCG/INH 1-2 PUFFS EVERY 4-6 HRS F
     Dates: start: 20120709
  15. LOVAZA [Concomitant]
     Dosage: 1000 MG, 1X/DAY
     Route: 048
     Dates: start: 20120709
  16. ALENDRONATE SODIUM [Concomitant]
     Dosage: 70 MG, WEEKLY (70 MG Q WEEK (WEDNESDAY)
     Route: 048
     Dates: start: 20120920
  17. FENOFIBRATE [Concomitant]
     Dosage: 200 MG, 1X/DAY
     Dates: start: 20120920
  18. FENOFIBRATE [Concomitant]
     Dosage: 160 MG, UNK
     Dates: start: 20120709, end: 20120920

REACTIONS (3)
  - Malaise [Unknown]
  - Asthenia [Unknown]
  - Drug ineffective [Unknown]
